FAERS Safety Report 25959703 (Version 2)
Quarter: 2025Q4

REPORT INFORMATION
  Report Type: Spontaneous
  Country: US (occurrence: US)
  Receive Date: 20251026
  Receipt Date: 20251030
  Transmission Date: 20260117
  Serious: No
  Sender: ELI LILLY AND COMPANY
  Company Number: US-ELI_LILLY_AND_COMPANY-US202510013149

PATIENT
  Age: 63 Year
  Sex: Female

DRUGS (2)
  1. ZEPBOUND [Suspect]
     Active Substance: TIRZEPATIDE
     Indication: Weight control
     Dosage: 5 MG, UNKNOWN
     Route: 058
     Dates: start: 2024
  2. ZEPBOUND [Suspect]
     Active Substance: TIRZEPATIDE
     Dosage: 5 MG, UNKNOWN
     Route: 058
     Dates: start: 20250926

REACTIONS (9)
  - Arthralgia [Unknown]
  - Peripheral swelling [Unknown]
  - Night sweats [Unknown]
  - Product storage error [Unknown]
  - Increased appetite [Unknown]
  - Drug ineffective [Unknown]
  - Weight increased [Unknown]
  - Nausea [Unknown]
  - Diarrhoea [Unknown]
